FAERS Safety Report 24440787 (Version 2)
Quarter: 2024Q4

REPORT INFORMATION
  Report Type: Report from Study
  Country: UY (occurrence: UY)
  Receive Date: 20241016
  Receipt Date: 20241017
  Transmission Date: 20250115
  Serious: No
  Sender: ROCHE
  Company Number: UY-ROCHE-3376819

PATIENT
  Age: 7 Year
  Sex: Male
  Weight: 25.5 kg

DRUGS (5)
  1. HEMLIBRA [Suspect]
     Active Substance: EMICIZUMAB-KXWH
     Indication: Factor VIII deficiency
     Dosage: 26/SEP/2022, 24/OCT/2022, 21/NOV/2022
     Route: 058
     Dates: start: 20220411
  2. HEMLIBRA [Suspect]
     Active Substance: EMICIZUMAB-KXWH
     Route: 058
     Dates: start: 20220314, end: 20220404
  3. HEMLIBRA [Suspect]
     Active Substance: EMICIZUMAB-KXWH
     Dosage: SCHEDULED PROPHYLACTIC DOSE 16/JAN/2023, 13/APR/2023, 13/MAR/2023, 07/MAY/2023
     Route: 058
     Dates: start: 20221216
  4. ANTIHEMOPHILIC FACTOR HUMAN [Concomitant]
     Active Substance: ANTIHEMOPHILIC FACTOR HUMAN
     Indication: Haemorrhage
     Dosage: 1500 U
     Dates: start: 20221215
  5. ANTIHEMOPHILIC FACTOR HUMAN [Concomitant]
     Active Substance: ANTIHEMOPHILIC FACTOR HUMAN
     Dosage: 1000 U
     Dates: start: 20230106

REACTIONS (2)
  - Headache [Recovered/Resolved]
  - Dizziness [Recovered/Resolved]

NARRATIVE: CASE EVENT DATE: 20230605
